FAERS Safety Report 5730283-7 (Version None)
Quarter: 2008Q2

REPORT INFORMATION
  Report Type: 
  Country: None (occurrence: None)
  Receive Date: 20080505
  Receipt Date: 20080505
  Transmission Date: 20081010
  Serious: Yes (Other)
  Sender: FDA-Public Use
  Company Number: None

PATIENT
  Age: 52 Year
  Sex: Female
  Weight: 68.9467 kg

DRUGS (1)
  1. PROVENTIL [Suspect]
     Indication: ASTHMA
     Dosage: FREQUENT PUFFS TOO OFTEN INHAL
     Route: 055
     Dates: start: 20080301, end: 20080504

REACTIONS (5)
  - ASTHMA [None]
  - CONCOMITANT DISEASE AGGRAVATED [None]
  - DRUG INEFFECTIVE [None]
  - FEAR OF DEATH [None]
  - PHARMACEUTICAL PRODUCT COMPLAINT [None]
